FAERS Safety Report 9318155 (Version 1)
Quarter: 2013Q2

REPORT INFORMATION
  Report Type: Spontaneous
  Country: GB (occurrence: None)
  Receive Date: 20130524
  Receipt Date: 20130524
  Transmission Date: 20140414
  Serious: Yes (Hospitalization, Other)
  Sender: FDA-Public Use
  Company Number: 2013P1006093

PATIENT
  Sex: Male

DRUGS (4)
  1. FLUOXETINE [Suspect]
  2. CODEINE [Concomitant]
  3. OPIATES [Concomitant]
  4. BENZODIAZEPINE [Suspect]

REACTIONS (15)
  - Serotonin syndrome [None]
  - Multiple fractures [None]
  - Joint dislocation [None]
  - Grand mal convulsion [None]
  - Somnolence [None]
  - Postictal state [None]
  - Tachycardia [None]
  - Blood pressure diastolic increased [None]
  - Leukocytosis [None]
  - Mutism [None]
  - Overdose [None]
  - Electrocardiogram abnormal [None]
  - Compression fracture [None]
  - Thoracic vertebral fracture [None]
  - Pneumonia [None]
